FAERS Safety Report 17597895 (Version 1)
Quarter: 2020Q1

REPORT INFORMATION
  Report Type: Spontaneous
  Country: US (occurrence: US)
  Receive Date: 20200329
  Receipt Date: 20200329
  Transmission Date: 20200409
  Serious: Yes (Hospitalization)
  Sender: FDA-Public Use
  Company Number: None

PATIENT
  Sex: Female

DRUGS (14)
  1. MORPHINE [Concomitant]
     Active Substance: MORPHINE
  2. LEVEMIR [Concomitant]
     Active Substance: INSULIN DETEMIR
  3. LEVOTHYROXIN [Concomitant]
     Active Substance: LEVOTHYROXINE
  4. MUCINEX [Concomitant]
     Active Substance: GUAIFENESIN
  5. ONDANSETRON [Concomitant]
     Active Substance: ONDANSETRON
  6. EVEROLIMUS. [Suspect]
     Active Substance: EVEROLIMUS
     Indication: RENAL CANCER
     Route: 048
     Dates: start: 20200229
  7. CONSTULOSE [Concomitant]
     Active Substance: LACTULOSE
  8. METAXALONE. [Concomitant]
     Active Substance: METAXALONE
  9. BUMETANIDE. [Concomitant]
     Active Substance: BUMETANIDE
  10. SIMVASTATIN. [Concomitant]
     Active Substance: SIMVASTATIN
  11. VITAMIN D3 [Concomitant]
     Active Substance: CHOLECALCIFEROL
  12. DOCQLACE [Concomitant]
     Active Substance: DOCUSATE SODIUM
  13. LOVENOX [Concomitant]
     Active Substance: ENOXAPARIN SODIUM
  14. VITAMIN B [Concomitant]
     Active Substance: VITAMIN B

REACTIONS (2)
  - Hospitalisation [None]
  - Therapy cessation [None]
